FAERS Safety Report 13914317 (Version 1)
Quarter: 2017Q3

REPORT INFORMATION
  Report Type: Spontaneous
  Country: US (occurrence: US)
  Receive Date: 20170828
  Receipt Date: 20170828
  Transmission Date: 20171127
  Serious: No
  Sender: FDA-Public Use
  Company Number: US-ROCHE-1139895

PATIENT
  Sex: Male
  Weight: 31.6 kg

DRUGS (1)
  1. NUTROPIN AQ [Suspect]
     Active Substance: SOMATROPIN
     Indication: GROWTH HORMONE DEFICIENCY
     Dosage: 0.27 ML
     Route: 058

REACTIONS (4)
  - Hypersomnia [Unknown]
  - Skin discolouration [Unknown]
  - Fatigue [Unknown]
  - Lethargy [Unknown]
